FAERS Safety Report 26211209 (Version 1)
Quarter: 2025Q4

REPORT INFORMATION
  Report Type: Spontaneous
  Country: US (occurrence: US)
  Receive Date: 20251230
  Receipt Date: 20251230
  Transmission Date: 20260118
  Serious: No
  Sender: AMGEN
  Company Number: US-AMGEN-USASP2025247221

PATIENT
  Sex: Female

DRUGS (1)
  1. REPATHA [Suspect]
     Active Substance: EVOLOCUMAB
     Indication: Type IIa hyperlipidaemia
     Dosage: 140 MILLIGRAM, Q2WK
     Route: 065
     Dates: start: 2024

REACTIONS (7)
  - Musculoskeletal stiffness [Unknown]
  - Neck pain [Unknown]
  - Adverse reaction [Unknown]
  - Pain [Unknown]
  - Abdominal pain upper [Unknown]
  - Influenza [Unknown]
  - Wrong technique in product usage process [Unknown]
